FAERS Safety Report 13145673 (Version 1)
Quarter: 2017Q1

REPORT INFORMATION
  Report Type: Spontaneous
  Country: BE (occurrence: BE)
  Receive Date: 20170124
  Receipt Date: 20170124
  Transmission Date: 20170428
  Serious: Yes (Other)
  Sender: FDA-Public Use
  Company Number: BE-PFIZER INC-2016515921

PATIENT
  Age: 57 Year
  Sex: Female

DRUGS (1)
  1. EPIPEN [Suspect]
     Active Substance: EPINEPHRINE
     Dosage: 0.3 MG, UNK
     Route: 058

REACTIONS (3)
  - Device issue [Unknown]
  - Incorrect route of drug administration [Unknown]
  - Device failure [Unknown]

NARRATIVE: CASE EVENT DATE: 20161026
